FAERS Safety Report 18796653 (Version 2)
Quarter: 2021Q2

REPORT INFORMATION
  Report Type: Other
  Country: US (occurrence: US)
  Receive Date: 20210128
  Receipt Date: 20210617
  Transmission Date: 20210717
  Serious: Yes (Other)
  Sender: FDA-Public Use
  Company Number: US-ROCHE-2752503

PATIENT
  Sex: Female

DRUGS (2)
  1. ACTEMRA [Suspect]
     Active Substance: TOCILIZUMAB
     Indication: GIANT CELL ARTERITIS
     Route: 058
  2. ACTEMRA [Suspect]
     Active Substance: TOCILIZUMAB

REACTIONS (14)
  - Visual impairment [Unknown]
  - Back disorder [Unknown]
  - Foot fracture [Unknown]
  - Vitreous floaters [Unknown]
  - Myalgia [Unknown]
  - Injury [Unknown]
  - Dry skin [Unknown]
  - Rash [Unknown]
  - Pruritus [Unknown]
  - Arthralgia [Unknown]
  - Ankle fracture [Unknown]
  - Increased tendency to bruise [Unknown]
  - Ill-defined disorder [Unknown]
  - Impaired healing [Unknown]
